FAERS Safety Report 21550680 (Version 2)
Quarter: 2022Q4

REPORT INFORMATION
  Report Type: Spontaneous
  Country: US (occurrence: US)
  Receive Date: 20221103
  Receipt Date: 20221119
  Transmission Date: 20230113
  Serious: Yes (Hospitalization)
  Sender: FDA-Public Use
  Company Number: US-TEVA-2022-US-2822827

PATIENT
  Age: 70 Year
  Sex: Male

DRUGS (1)
  1. DOXORUBICIN [Suspect]
     Active Substance: DOXORUBICIN
     Indication: Hepatocellular carcinoma
     Route: 065

REACTIONS (4)
  - Pleurisy [Recovered/Resolved]
  - Empyema [Recovered/Resolved]
  - Acute respiratory failure [Recovered/Resolved]
  - Leukocytosis [Recovered/Resolved]
